FAERS Safety Report 10672488 (Version 1)
Quarter: 2014Q4

REPORT INFORMATION
  Report Type: Spontaneous
  Country: ES (occurrence: ES)
  Receive Date: 20141223
  Receipt Date: 20141223
  Transmission Date: 20150529
  Serious: Yes (Hospitalization, Other)
  Sender: FDA-Public Use
  Company Number: ES-ELI_LILLY_AND_COMPANY-ES201412006173

PATIENT
  Age: 81 Year
  Sex: Female

DRUGS (3)
  1. XERISTAR [Suspect]
     Active Substance: DULOXETINE HYDROCHLORIDE
     Dosage: 30 MG, QD
     Route: 048
  2. XERISTAR [Suspect]
     Active Substance: DULOXETINE HYDROCHLORIDE
     Indication: DEPRESSION
     Dosage: 60 MG, QD
     Route: 048
  3. DEANOL [Concomitant]
     Active Substance: DEANOL
     Dosage: UNK, UNKNOWN
     Route: 065
     Dates: end: 201407

REACTIONS (8)
  - Confusional state [Recovering/Resolving]
  - Vertigo [Unknown]
  - Fall [Unknown]
  - Vomiting [Unknown]
  - Delirium [Unknown]
  - Psychomotor hyperactivity [Unknown]
  - Balance disorder [Unknown]
  - Disorientation [Unknown]

NARRATIVE: CASE EVENT DATE: 20140705
